FAERS Safety Report 25562198 (Version 2)
Quarter: 2025Q3

REPORT INFORMATION
  Report Type: Spontaneous
  Country: US (occurrence: US)
  Receive Date: 20250716
  Receipt Date: 20250815
  Transmission Date: 20251020
  Serious: No
  Sender: AMGEN
  Company Number: US-PFIZER INC-202500141389

PATIENT
  Age: 50 Year
  Sex: Female

DRUGS (1)
  1. ENBREL [Suspect]
     Active Substance: ETANERCEPT
     Indication: Product used for unknown indication
     Route: 065

REACTIONS (4)
  - Musculoskeletal stiffness [Unknown]
  - Pain [Unknown]
  - Pain in extremity [Unknown]
  - Neck pain [Unknown]

NARRATIVE: CASE EVENT DATE: 20241212
